FAERS Safety Report 4847587-2 (Version None)
Quarter: 2005Q4

REPORT INFORMATION
  Report Type: 
  Country: None (occurrence: None)
  Receive Date: 20051205
  Receipt Date: 20051118
  Transmission Date: 20060501
  Serious: Yes (Hospitalization)
  Sender: FDA-Public Use
  Company Number: 310001L05GRC

PATIENT
  Age: 30 Year
  Sex: Female

DRUGS (4)
  1. FOLLITROPIN ALPHA (FOLLITROPIN ALFA) [Suspect]
     Indication: IN VITRO FERTILISATION
  2. GONADOTROPIN-RELEASING HORMONE AGONIST (GONADOTROPIN-RELEASING HORMONE [Suspect]
     Indication: IN VITRO FERTILISATION
  3. CHORIONIC GONADOTROPIN [Suspect]
     Indication: IN VITRO FERTILISATION
  4. METRODIN [Suspect]
     Indication: IN VITRO FERTILISATION

REACTIONS (8)
  - ASCITES [None]
  - BUDD-CHIARI SYNDROME [None]
  - HYPERCOAGULATION [None]
  - MYELOPROLIFERATIVE DISORDER [None]
  - OEDEMA PERIPHERAL [None]
  - PORTAL HYPERTENSIVE GASTROPATHY [None]
  - VARICES OESOPHAGEAL [None]
  - VENOUS THROMBOSIS [None]
